FAERS Safety Report 13667007 (Version 1)
Quarter: 2017Q2

REPORT INFORMATION
  Report Type: Spontaneous
  Country: US (occurrence: US)
  Receive Date: 20170619
  Receipt Date: 20170619
  Transmission Date: 20170830
  Serious: Yes (Other)
  Sender: FDA-Public Use
  Company Number: US-ROCHE-1436272

PATIENT
  Age: 61 Year
  Sex: Female

DRUGS (1)
  1. XELODA [Suspect]
     Active Substance: CAPECITABINE
     Indication: BREAST CANCER
     Dosage: 14 DAYS ON AND 7 DAYS OFF?3 TABLETS IN MORNING AND 3 TABLETS IN EVENING
     Route: 048

REACTIONS (3)
  - Diarrhoea [Unknown]
  - Incontinence [Unknown]
  - Bowel movement irregularity [Unknown]
